FAERS Safety Report 5506144-5 (Version None)
Quarter: 2007Q4

REPORT INFORMATION
  Report Type: 
  Country: None (occurrence: None)
  Receive Date: 20071105
  Receipt Date: 20071030
  Transmission Date: 20080405
  Serious: Yes (Other)
  Sender: FDA-Public Use
  Company Number: PHRM2007FR02514

PATIENT
  Sex: Female

DRUGS (2)
  1. CELECTOL [Concomitant]
  2. EXFORGE [Suspect]
     Dosage: 1 DF, QD
     Route: 048

REACTIONS (3)
  - DIZZINESS [None]
  - FALL [None]
  - MALAISE [None]
